FAERS Safety Report 26018127 (Version 5)
Quarter: 2025Q4

REPORT INFORMATION
  Report Type: Report from Study
  Country: CN (occurrence: CN)
  Receive Date: 20251110
  Receipt Date: 20251217
  Transmission Date: 20260118
  Serious: Yes (Hospitalization, Other)
  Sender: JOHNSON AND JOHNSON
  Company Number: CN-JNJFOC-20251142115

PATIENT
  Age: 68 Year
  Sex: Male
  Weight: 74 kg

DRUGS (27)
  1. DARATUMUMAB [Suspect]
     Active Substance: DARATUMUMAB
     Indication: Plasma cell myeloma refractory
     Dosage: END DATE: 14-OCT-2025
     Route: 041
     Dates: start: 20251014
  2. DARATUMUMAB [Suspect]
     Active Substance: DARATUMUMAB
     Route: 041
     Dates: start: 20251023, end: 20251023
  3. DARATUMUMAB [Suspect]
     Active Substance: DARATUMUMAB
     Dates: start: 20251111, end: 20251111
  4. DARATUMUMAB [Suspect]
     Active Substance: DARATUMUMAB
     Dates: start: 20251118, end: 20251118
  5. DEXAMETHASONE SODIUM PHOSPHATE [Suspect]
     Active Substance: DEXAMETHASONE SODIUM PHOSPHATE
     Indication: Plasma cell myeloma refractory
     Route: 041
     Dates: start: 20251023, end: 20251023
  6. DEXAMETHASONE SODIUM PHOSPHATE [Suspect]
     Active Substance: DEXAMETHASONE SODIUM PHOSPHATE
     Dosage: END DATE: 14-OCT-2025
     Route: 041
     Dates: start: 20251013
  7. DEXAMETHASONE SODIUM PHOSPHATE [Suspect]
     Active Substance: DEXAMETHASONE SODIUM PHOSPHATE
     Route: 041
     Dates: start: 20251111, end: 20251111
  8. DEXAMETHASONE SODIUM PHOSPHATE [Suspect]
     Active Substance: DEXAMETHASONE SODIUM PHOSPHATE
     Route: 041
     Dates: start: 20251118, end: 20251118
  9. POMALIDOMIDE [Suspect]
     Active Substance: POMALIDOMIDE
     Indication: Plasma cell myeloma refractory
  10. DEXAMETHASONE [Suspect]
     Active Substance: DEXAMETHASONE
     Indication: Plasma cell myeloma refractory
     Dosage: END DATE: 11-NOV-2025
     Route: 048
  11. DEXAMETHASONE [Suspect]
     Active Substance: DEXAMETHASONE
     Dosage: END DATE: 12-NOV-2025
     Route: 048
  12. DEXAMETHASONE [Suspect]
     Active Substance: DEXAMETHASONE
     Dosage: END DATE: 12-NOV-2025
     Route: 048
     Dates: start: 20251119, end: 20251119
  13. FUROSEMIDE [Concomitant]
     Active Substance: FUROSEMIDE
     Indication: Face oedema
     Route: 040
     Dates: start: 20251017, end: 20251104
  14. FUROSEMIDE [Concomitant]
     Active Substance: FUROSEMIDE
     Indication: Polyuria
  15. INSULIN GLARGINE [Concomitant]
     Active Substance: INSULIN GLARGINE
     Indication: Diabetes mellitus
     Dosage: 18 UNITS, ONCE EVERY NIGHT (QN)
     Route: 058
  16. INSULIN ASPART [Concomitant]
     Active Substance: INSULIN ASPART
     Indication: Diabetes mellitus
     Dosage: 18 UNITS
     Route: 058
  17. LIDOCAINE [Concomitant]
     Active Substance: LIDOCAINE
     Indication: Anaesthesia
     Dosage: INJECTION (100 MG, ONCE, IV BOLUS)
  18. CHLORPHENIRAMINE MALEATE [Concomitant]
     Active Substance: CHLORPHENIRAMINE MALEATE
     Indication: Premedication
     Dosage: TABLETS (4 MG, ONCE, PO)
     Route: 040
  19. SULFAMETHOXAZOLE [Concomitant]
     Active Substance: SULFAMETHOXAZOLE
     Indication: Prophylaxis
     Dosage: (0.48 G (1 TABLET), QD, PO)
  20. SULFAMETHOXAZOLE [Concomitant]
     Active Substance: SULFAMETHOXAZOLE
     Dosage: TABLETS (0.48 G, EVERY OTHER DAY (QOD), PO)
  21. FAMCICLOVIR [Concomitant]
     Active Substance: FAMCICLOVIR
     Indication: Prophylaxis
     Dosage: TABLETS (0.25 G, TID, PO)
     Route: 048
     Dates: start: 20251117, end: 20251124
  22. ESOMEPRAZOLE [Concomitant]
     Active Substance: ESOMEPRAZOLE
     Indication: Gastrointestinal disorder therapy
     Dosage: ENTERIC-COATED TABLETS (1 TABLET, ONCE, PO)
  23. ESOMEPRAZOLE [Concomitant]
     Active Substance: ESOMEPRAZOLE
     Dosage: ENTERIC-COATED TABLETS (1 TABLET, ONCE, PO)
  24. ACETAMINOPHEN\ASPIRIN\CAFFEINE [Concomitant]
     Active Substance: ACETAMINOPHEN\ASPIRIN\CAFFEINE
     Indication: Premedication
     Dosage: (1 TABLET, ONCE, PO)
  25. CETIRIZINE HYDROCHLORIDE [Concomitant]
     Active Substance: CETIRIZINE HYDROCHLORIDE
     Indication: Premedication
     Dosage: (1 TABLET, ONCE, PO)
  26. SULFAMETHOXAZOLE [Concomitant]
     Active Substance: SULFAMETHOXAZOLE
     Indication: Pneumocystis jirovecii pneumonia
     Dosage: (1 TABLET, ONCE, PO)
     Route: 048
     Dates: start: 20251117
  27. ESTAZOLAM [Concomitant]
     Active Substance: ESTAZOLAM
     Indication: Sleep disorder therapy
     Dosage: (1 TABLET, ONCE, PO)

REACTIONS (7)
  - Platelet count decreased [Not Recovered/Not Resolved]
  - Cardiac failure [Not Recovered/Not Resolved]
  - Lymphocyte count decreased [Recovering/Resolving]
  - Face oedema [Not Recovered/Not Resolved]
  - Chest discomfort [Unknown]
  - White blood cell count decreased [Recovered/Resolved]
  - Hepatic function abnormal [Recovered/Resolved]

NARRATIVE: CASE EVENT DATE: 20251015
